FAERS Safety Report 21566731 (Version 5)
Quarter: 2022Q4

REPORT INFORMATION
  Report Type: Report from Study
  Country: CA (occurrence: CA)
  Receive Date: 20221108
  Receipt Date: 20221207
  Transmission Date: 20230113
  Serious: Yes (Hospitalization, Other)
  Sender: FDA-Public Use
  Company Number: CA-SAMSUNG BIOEPIS-SB-2022-27934

PATIENT
  Age: 59 Year
  Sex: Female

DRUGS (3)
  1. HADLIMA [Suspect]
     Active Substance: ADALIMUMAB-BWWD
     Indication: Psoriasis
     Dosage: 40 MG/0.8 ML;
     Route: 065
     Dates: start: 20211127
  2. HADLIMA [Suspect]
     Active Substance: ADALIMUMAB-BWWD
     Route: 065
     Dates: start: 20221129
  3. CORTISONE [Suspect]
     Active Substance: CORTISONE
     Indication: Product used for unknown indication
     Dosage: UNKNOWN
     Route: 065

REACTIONS (12)
  - Gastrointestinal bacterial infection [Unknown]
  - Blood potassium decreased [Unknown]
  - Giardiasis [Unknown]
  - Gastrointestinal disorder [Unknown]
  - Hyponatraemia [Unknown]
  - Throat irritation [Unknown]
  - Palpitations [Not Recovered/Not Resolved]
  - Dysuria [Not Recovered/Not Resolved]
  - Pain in extremity [Not Recovered/Not Resolved]
  - Anal fissure haemorrhage [Not Recovered/Not Resolved]
  - Haemorrhoids [Not Recovered/Not Resolved]
  - Illness [Unknown]
